FAERS Safety Report 25845182 (Version 1)
Quarter: 2025Q3

REPORT INFORMATION
  Report Type: Spontaneous
  Country: US (occurrence: US)
  Receive Date: 20250925
  Receipt Date: 20250925
  Transmission Date: 20251020
  Serious: No
  Sender: AMGEN
  Company Number: US-AMGEN-USASP2025181374

PATIENT
  Sex: Female

DRUGS (1)
  1. REPATHA [Suspect]
     Active Substance: EVOLOCUMAB
     Indication: Product used for unknown indication
     Route: 065

REACTIONS (6)
  - Adverse drug reaction [Unknown]
  - Injection site pain [Unknown]
  - Chest pain [Unknown]
  - Contusion [Unknown]
  - Sneezing [Unknown]
  - Dyspnoea [Unknown]
